FAERS Safety Report 9073877 (Version 1)
Quarter: 2013Q1

REPORT INFORMATION
  Report Type: Report from Study
  Country: US (occurrence: US)
  Receive Date: 20130129
  Receipt Date: 20130129
  Transmission Date: 20140127
  Serious: No
  Sender: FDA-Public Use
  Company Number: US-ABBOTT-12P-163-0919673-00

PATIENT
  Age: 60 Year
  Sex: Male

DRUGS (9)
  1. HUMIRA 40 MG/0.8 ML PEN [Suspect]
     Indication: ANKYLOSING SPONDYLITIS
     Dates: start: 20120221
  2. PREDNISONE [Concomitant]
     Indication: PRODUCT USED FOR UNKNOWN INDICATION
  3. PREDNISONE [Concomitant]
  4. HYDROXYCHLOROQUINE [Concomitant]
     Indication: ANKYLOSING SPONDYLITIS
  5. COLCHICINE [Concomitant]
     Indication: ANKYLOSING SPONDYLITIS
  6. AMLODIPINE [Concomitant]
     Indication: HYPERTENSION
  7. METOPROLOL [Concomitant]
     Indication: HYPERTENSION
  8. ZETIA [Concomitant]
     Indication: BLOOD CHOLESTEROL INCREASED
  9. BAYER ASA [Concomitant]
     Indication: PROPHYLAXIS
     Dosage: DAILY

REACTIONS (7)
  - Joint swelling [Not Recovered/Not Resolved]
  - Gait disturbance [Not Recovered/Not Resolved]
  - Drug ineffective [Not Recovered/Not Resolved]
  - Injection site pain [Unknown]
  - Injection site haemorrhage [Unknown]
  - Incorrect dose administered [Recovering/Resolving]
  - Device malfunction [Unknown]
